FAERS Safety Report 8534962 (Version 3)
Quarter: 2013Q2

REPORT INFORMATION
  Report Type: Spontaneous
  Country: US (occurrence: US)
  Receive Date: 20120427
  Receipt Date: 20130507
  Transmission Date: 20140414
  Serious: Yes (Other)
  Sender: FDA-Public Use
  Company Number: US-ASTRAZENECA-2012SE25607

PATIENT
  Age: 59 Year
  Sex: Female

DRUGS (2)
  1. NEXIUM [Suspect]
     Route: 048
  2. PRILOSEC [Suspect]
     Route: 048

REACTIONS (6)
  - Gastric ulcer [Unknown]
  - Gastritis erosive [Unknown]
  - Dysphagia [Unknown]
  - Regurgitation [Unknown]
  - Drug ineffective [Unknown]
  - Drug dose omission [Unknown]
